FAERS Safety Report 4333462-9 (Version None)
Quarter: 2004Q1

REPORT INFORMATION
  Report Type: 
  Country: None (occurrence: None)
  Receive Date: 20040329
  Receipt Date: 20040225
  Transmission Date: 20041129
  Serious: No
  Sender: FDA-Public Use
  Company Number: 04P-163-0250060-00

PATIENT
  Age: 57 Year
  Sex: Female
  Weight: 74.8435 kg

DRUGS (8)
  1. HUMIRA [Suspect]
     Indication: RHEUMATOID ARTHRITIS
     Dosage: 40 MG, 1 IN 2 WK, SUBCUTANEOUS
     Route: 058
     Dates: start: 20040115
  2. METOPROLOL SUCCINATE [Concomitant]
  3. PIROXICAM [Concomitant]
  4. PREDNISONE [Concomitant]
  5. CONJUGATED ESTROGEN [Concomitant]
  6. MEDROXYPROGESTERONE ACETATE [Concomitant]
  7. METHOTREXATE [Concomitant]
  8. FOLIC ACID [Concomitant]

REACTIONS (3)
  - ARTHRALGIA [None]
  - FEELING HOT [None]
  - SINUSITIS [None]
